FAERS Safety Report 6583970-5 (Version None)
Quarter: 2010Q1

REPORT INFORMATION
  Report Type: 
  Country: None (occurrence: None)
  Receive Date: 20100213
  Receipt Date: 20100213
  Transmission Date: 20100710
  Serious: Yes (Life-Threatening, Other)
  Sender: FDA-Public Use
  Company Number: None

PATIENT
  Age: 46 Year
  Sex: Female
  Weight: 90.7194 kg

DRUGS (1)
  1. ROPINIROLE [Suspect]
     Indication: RESTLESS LEGS SYNDROME
     Dosage: 0. 25 MG TABLET 1 PO
     Route: 048
     Dates: start: 20100111, end: 20100121

REACTIONS (4)
  - AGITATION [None]
  - FEAR [None]
  - MENTAL STATUS CHANGES [None]
  - SUICIDAL IDEATION [None]
